FAERS Safety Report 5453949-5 (Version None)
Quarter: 2007Q3

REPORT INFORMATION
  Report Type: 
  Country: None (occurrence: None)
  Receive Date: 20070917
  Receipt Date: 20070427
  Transmission Date: 20080115
  Serious: No
  Sender: FDA-Public Use
  Company Number: US-ASTRAZENECA-2005UW13875

PATIENT
  Age: 15 Year
  Sex: Male

DRUGS (21)
  1. SEROQUEL [Suspect]
     Route: 048
     Dates: start: 20000201, end: 20020401
  2. ZYPREXA [Suspect]
     Dates: start: 20000201, end: 20030101
  3. TOPAMAX [Concomitant]
     Route: 048
     Dates: end: 20030401
  4. ADDERALL [Concomitant]
     Dates: start: 20040130
  5. DEPAKOTE [Concomitant]
     Route: 048
  6. RITALIN [Concomitant]
     Route: 048
     Dates: start: 19970101
  7. WELLBUTRIN [Concomitant]
     Route: 048
  8. TYLENOL (CAPLET) [Concomitant]
  9. PROVENTIL [Concomitant]
     Indication: ASTHMA
     Dosage: 2 PUFFS
     Route: 055
  10. HALDOL [Concomitant]
     Route: 048
  11. VISTARIL [Concomitant]
     Indication: AGITATION
     Route: 048
  12. ALBUTEROL [Concomitant]
     Route: 055
  13. INSULIN [Concomitant]
     Dates: start: 20030922
  14. CLONIDINE [Concomitant]
     Dates: start: 19970101
  15. METADATE SR [Concomitant]
  16. CALADRYL CREAM [Concomitant]
     Indication: DERMATITIS CONTACT
     Dates: start: 19970101
  17. TRAZODONE HCL [Concomitant]
     Dates: end: 19970620
  18. REGULAR NPH INSULIN [Concomitant]
     Dates: start: 20050101
  19. LUVOX [Concomitant]
     Route: 048
     Dates: start: 19970101
  20. BACTRIM [Concomitant]
     Route: 048
     Dates: start: 19980730, end: 19980810
  21. AMOXIL [Concomitant]

REACTIONS (7)
  - CORNEAL ABRASION [None]
  - HYPERCHOLESTEROLAEMIA [None]
  - INSOMNIA [None]
  - RESPIRATORY TRACT INFECTION [None]
  - SKIN DISORDER [None]
  - TINEA PEDIS [None]
  - TYPE 1 DIABETES MELLITUS [None]
